FAERS Safety Report 20610669 (Version 2)
Quarter: 2025Q4

REPORT INFORMATION
  Report Type: Spontaneous
  Country: EU (occurrence: EU)
  Receive Date: 20220318
  Receipt Date: 20251229
  Transmission Date: 20260117
  Serious: Yes (Life-Threatening)
  Sender: TEVA
  Company Number: None

PATIENT
  Age: 58 Year
  Sex: Male
  Weight: 83 kg

DRUGS (10)
  1. LENALIDOMIDE [Suspect]
     Active Substance: LENALIDOMIDE
     Indication: Plasma cell myeloma
     Dosage: DOSAGE TEXT: 25 MG A-CO, LENALIDOMIDE (8089A)
     Route: 048
     Dates: start: 20211022
  2. BLENREP [Suspect]
     Active Substance: BELANTAMAB MAFODOTIN-BLMF
     Indication: Plasma cell myeloma
     Dosage: 200.0 MG
     Route: 042
     Dates: start: 20211022
  3. LORMETAZEPAM [Concomitant]
     Active Substance: LORMETAZEPAM
     Indication: Insomnia
     Dosage: 1.0 MG C/24 H NOC, EFG TABLETS, 30 TABLETS
     Route: 048
     Dates: start: 20211129
  4. FML [Concomitant]
     Active Substance: FLUOROMETHOLONE
     Indication: Keratitis
     Dosage: 1.0 GTS C/6 HOURS, 1 DROPPER BOTTLE OF 5 ML
     Route: 065
     Dates: start: 20220111, end: 20220210
  5. ACETAMINOPHEN [Concomitant]
     Active Substance: ACETAMINOPHEN
     Indication: Plasma cell myeloma
     Dosage: 1.0 G DECOCE, PARACETAMOL MYLAN PHARMACEUTICALS
     Route: 048
     Dates: start: 20211022
  6. ACYCLOVIR [Concomitant]
     Active Substance: ACYCLOVIR
     Indication: Plasma cell myeloma
     Dosage: 400.0 MG C/12 H, ACICLOVIR VIATRIS EFG TABLETS, 25 TABLETS
     Route: 048
     Dates: start: 20211022
  7. OMEPRAZOLE [Concomitant]
     Active Substance: OMEPRAZOLE
     Indication: Plasma cell myeloma
     Dosage: 20.0 MG A-DE, EFG, 56 CAPSULES (BOTTLE)
     Route: 048
     Dates: start: 20211023
  8. CALCIUM CARBONATE [Concomitant]
     Active Substance: CALCIUM CARBONATE
     Indication: Plasma cell myeloma
     Dosage: 1250.0 MG CE, 90 TABLETS
     Route: 048
     Dates: start: 20220124
  9. BORTEZOMIB [Suspect]
     Active Substance: BORTEZOMIB
     Indication: Plasma cell myeloma
     Dosage: DOSAGE TEXT: 2.44 MG, BORTEZOMIB (2928A)
     Route: 058
     Dates: start: 20211022
  10. A.A.S [Concomitant]
     Indication: Plasma cell myeloma
     Dosage: 100.0 MG DE, 30 TABLETS
     Route: 048
     Dates: start: 20211023

REACTIONS (2)
  - Thrombosis [Recovering/Resolving]
  - Interstitial lung disease [Recovering/Resolving]

NARRATIVE: CASE EVENT DATE: 20220131
